FAERS Safety Report 21776908 (Version 1)
Quarter: 2022Q4

REPORT INFORMATION
  Report Type: Spontaneous
  Country: US (occurrence: US)
  Receive Date: 20221226
  Receipt Date: 20221226
  Transmission Date: 20230113
  Serious: No
  Sender: FDA-Public Use
  Company Number: US-GSKCCFUS-Case-01586711_AE-89621

PATIENT
  Age: 75 Year
  Sex: Male

DRUGS (1)
  1. NUCALA [Suspect]
     Active Substance: MEPOLIZUMAB
     Indication: Product used for unknown indication
     Dosage: 300 MG, Z EVERY 4 WEEKS

REACTIONS (3)
  - Pruritus [Not Recovered/Not Resolved]
  - Rash macular [Unknown]
  - Insomnia [Unknown]

NARRATIVE: CASE EVENT DATE: 20221208
